FAERS Safety Report 5864632-6 (Version None)
Quarter: 2008Q3

REPORT INFORMATION
  Report Type: 
  Country: None (occurrence: None)
  Receive Date: 20080829
  Receipt Date: 20080807
  Transmission Date: 20090109
  Serious: No
  Sender: FDA-Public Use
  Company Number: US-ABBOTT-08P-163-0462684-00

PATIENT

DRUGS (3)
  1. SIMCOR [Suspect]
     Indication: HIGH DENSITY LIPOPROTEIN DECREASED
     Dates: start: 20080401
  2. SIMCOR [Suspect]
  3. SIMCOR [Suspect]
     Dates: start: 20080714

REACTIONS (1)
  - DRUG INEFFECTIVE [None]
